FAERS Safety Report 14209862 (Version 2)
Quarter: 2018Q1

REPORT INFORMATION
  Report Type: Spontaneous
  Country: US (occurrence: US)
  Receive Date: 20171121
  Receipt Date: 20180222
  Transmission Date: 20180508
  Serious: No
  Sender: FDA-Public Use
  Company Number: US-PFIZER INC-2017497825

PATIENT
  Age: 5 Year
  Sex: Female
  Weight: 15 kg

DRUGS (2)
  1. GENOTROPIN [Suspect]
     Active Substance: SOMATROPIN
     Indication: TURNER^S SYNDROME
  2. GENOTROPIN [Suspect]
     Active Substance: SOMATROPIN
     Indication: GROWTH HORMONE DEFICIENCY
     Dosage: 0.6 MG, DAILY, (0.6 MG/DAY7 DAYS/ WEEK), (WEEKLY DOSE OF 0.28 MG/KG/WK)
     Route: 058

REACTIONS (1)
  - Pain in extremity [Not Recovered/Not Resolved]
